FAERS Safety Report 10233160 (Version 1)
Quarter: 2014Q2

REPORT INFORMATION
  Report Type: Spontaneous
  Country: GB (occurrence: GB)
  Receive Date: 20140612
  Receipt Date: 20140612
  Transmission Date: 20141212
  Serious: Yes (Hospitalization)
  Sender: FDA-Public Use
  Company Number: GB-MYLANLABS-2014S1012914

PATIENT
  Age: 68 Year
  Sex: Male
  Weight: 85 kg

DRUGS (16)
  1. CLARITHROMYCIN [Suspect]
     Dates: start: 20140429, end: 20140506
  2. CLARITHROMYCIN [Suspect]
     Dates: start: 20140516
  3. COLCHICINE [Concomitant]
     Dates: start: 20140408, end: 20140506
  4. DIHYDROCODEINE [Concomitant]
     Dates: start: 20140217, end: 20140506
  5. E45 [Concomitant]
     Dates: start: 20140217, end: 20140218
  6. FUROSEMIDE [Concomitant]
     Dates: start: 20140217, end: 20140506
  7. FUSIDATE [Concomitant]
     Dates: start: 20140429, end: 20140513
  8. ISOSORBIDE MONONITRATE [Concomitant]
     Dates: start: 20140217, end: 20140506
  9. METFORMIN [Concomitant]
     Dates: start: 20140408, end: 20140506
  10. METFORMIN [Concomitant]
     Dates: start: 20140217, end: 20140317
  11. NICORANDIL [Concomitant]
     Dates: start: 20140408, end: 20140508
  12. NICORANDIL [Concomitant]
     Dates: start: 20140217, end: 20140319
  13. OXYBUTYNIN [Concomitant]
     Dates: start: 20140217, end: 20140506
  14. RAMIPRIL [Concomitant]
     Dates: start: 20140217, end: 20140506
  15. TEMAZEPAM [Concomitant]
     Dates: start: 20140217, end: 20140506
  16. WARFARIN SODIUM [Concomitant]
     Dates: start: 20140217, end: 20140218

REACTIONS (3)
  - Myositis [Recovering/Resolving]
  - Muscular weakness [Unknown]
  - Blood creatine phosphokinase increased [Unknown]
